FAERS Safety Report 9580758 (Version 1)
Quarter: 2013Q4

REPORT INFORMATION
  Report Type: Spontaneous
  Country: US (occurrence: None)
  Receive Date: 20131001
  Receipt Date: 20131001
  Transmission Date: 20140711
  Serious: Yes (Disabling)
  Sender: FDA-Public Use
  Company Number: None

PATIENT
  Age: 38 Year
  Sex: Male
  Weight: 105.24 kg

DRUGS (1)
  1. METHYLPHENIDATE [Suspect]
     Indication: CRANIOCEREBRAL INJURY
     Route: 048
     Dates: start: 20080715, end: 20130715

REACTIONS (1)
  - Raynaud^s phenomenon [None]
